FAERS Safety Report 7245028-1 (Version None)
Quarter: 2011Q1

REPORT INFORMATION
  Report Type: 
  Country: None (occurrence: None)
  Receive Date: 20110126
  Receipt Date: 20110113
  Transmission Date: 20110831
  Serious: Yes (Other)
  Sender: FDA-Public Use
  Company Number: US-CELGENEUS-163-21880-10113286

PATIENT
  Sex: Male

DRUGS (3)
  1. REVLIMID [Suspect]
     Route: 048
     Dates: start: 20101115
  2. REVLIMID [Suspect]
     Route: 048
     Dates: start: 20100901
  3. REVLIMID [Suspect]
     Route: 048
     Dates: start: 20101001

REACTIONS (5)
  - CHOLECYSTECTOMY [None]
  - RESPIRATORY TRACT CONGESTION [None]
  - BRONCHITIS [None]
  - NASOPHARYNGITIS [None]
  - INFLUENZA LIKE ILLNESS [None]
